FAERS Safety Report 5095265-X (Version None)
Quarter: 2006Q3

REPORT INFORMATION
  Report Type: 
  Country: None (occurrence: None)
  Receive Date: 20060901
  Receipt Date: 20060821
  Transmission Date: 20061208
  Serious: Yes (Hospitalization)
  Sender: FDA-Public Use
  Company Number: PHHO2006PL13889

PATIENT
  Age: 75 Year
  Sex: Female

DRUGS (6)
  1. FEMARA [Suspect]
     Indication: BREAST CANCER METASTATIC
     Dosage: 2.5 MG, QD
     Route: 048
     Dates: start: 20050921
  2. ASPARGIN [Concomitant]
  3. SPIRONOLACTONE [Concomitant]
  4. QUINAPRIL HCL [Concomitant]
  5. ASPIRIN [Concomitant]
  6. LOSARTAN POTASSIUM [Concomitant]

REACTIONS (2)
  - ERYSIPELAS [None]
  - ERYTHEMA [None]
